FAERS Safety Report 7273246-5 (Version None)
Quarter: 2011Q1

REPORT INFORMATION
  Report Type: 
  Country: None (occurrence: None)
  Receive Date: 20110203
  Receipt Date: 20110124
  Transmission Date: 20110831
  Serious: Yes (Other)
  Sender: FDA-Public Use
  Company Number: US-ELI_LILLY_AND_COMPANY-US201101006293

PATIENT
  Age: 32 Year
  Sex: Female
  Weight: 62.1 kg

DRUGS (5)
  1. PROZAC [Suspect]
     Indication: BIPOLAR DISORDER
     Dosage: UNK, UNK
  2. IBUPROFEN [Concomitant]
     Dosage: 850 MG, UNK
  3. KLONOPIN [Concomitant]
     Indication: BIPOLAR DISORDER
  4. CHANTIX [Concomitant]
     Indication: SMOKING CESSATION THERAPY
     Dosage: 0.5 MG, DAILY (1/D)
     Route: 048
     Dates: end: 20110109
  5. SEROQUEL [Concomitant]
     Indication: BIPOLAR DISORDER

REACTIONS (7)
  - PERSONALITY CHANGE [None]
  - OFF LABEL USE [None]
  - HOMICIDAL IDEATION [None]
  - DRUG INTERACTION [None]
  - FEELING ABNORMAL [None]
  - STOMATITIS [None]
  - ERYTHEMA [None]
